FAERS Safety Report 7534601-9 (Version None)
Quarter: 2011Q2

REPORT INFORMATION
  Report Type: 
  Country: None (occurrence: None)
  Receive Date: 20110609
  Receipt Date: 20100225
  Transmission Date: 20111010
  Serious: Yes (Hospitalization)
  Sender: FDA-Public Use
  Company Number: PHHY2009JP41925

PATIENT
  Sex: Male

DRUGS (8)
  1. AMLODIPINE [Concomitant]
     Dosage: 10 MG, UNK
     Route: 048
     Dates: start: 20071001, end: 20090331
  2. DUROTEP JANSSEN [Concomitant]
     Dosage: 4.2 MG, UNK
     Route: 062
     Dates: start: 20080211, end: 20090331
  3. FENTANYL CITRATE [Concomitant]
     Dosage: 400 UG, UNK
     Route: 048
     Dates: start: 20081208, end: 20090331
  4. LEUCOVORIN CALCIUM [Concomitant]
     Dosage: 225 MG, UNK
     Route: 042
     Dates: start: 20070118, end: 20080213
  5. CGP 42446 [Suspect]
     Indication: LARGE INTESTINE CARCINOMA
     Dosage: 4 MG, TIW
     Route: 042
     Dates: start: 20080202
  6. IRINOTECAN HCL [Concomitant]
     Dosage: 160 MG, UNK
     Route: 042
     Dates: start: 20070118, end: 20080213
  7. ALLOPURINOL [Concomitant]
     Dosage: 100 MG, UNK
     Route: 048
     Dates: start: 20071207, end: 20090331
  8. FLUOROURACIL [Concomitant]
     Dosage: 450 MG, UNK
     Route: 042
     Dates: start: 20070118, end: 20080213

REACTIONS (3)
  - INTESTINAL OBSTRUCTION [None]
  - DEHYDRATION [None]
  - RENAL IMPAIRMENT [None]
